FAERS Safety Report 5509515-6 (Version None)
Quarter: 2007Q4

REPORT INFORMATION
  Report Type: 
  Country: None (occurrence: None)
  Receive Date: 20071107
  Receipt Date: 20071026
  Transmission Date: 20080405
  Serious: Yes (Other)
  Sender: FDA-Public Use
  Company Number: US-PFIZER INC-2007091440

PATIENT
  Sex: Female

DRUGS (2)
  1. CHANTIX [Suspect]
     Indication: EX-SMOKER
     Dates: start: 20070101, end: 20070101
  2. SEROTONIN REUPTAKE INHIBITOR [Concomitant]

REACTIONS (7)
  - ABDOMINAL DISTENSION [None]
  - APATHY [None]
  - FLATULENCE [None]
  - PHARYNGEAL OEDEMA [None]
  - PRURITUS [None]
  - RASH GENERALISED [None]
  - RASH PAPULAR [None]
